FAERS Safety Report 21290150 (Version 1)
Quarter: 2022Q3

REPORT INFORMATION
  Report Type: Report from Study
  Country: DE (occurrence: DE)
  Receive Date: 20220902
  Receipt Date: 20220902
  Transmission Date: 20221027
  Serious: Yes (Death, Other)
  Sender: FDA-Public Use
  Company Number: DE-GLAXOSMITHKLINE-DECH2022GSK031462

PATIENT

DRUGS (1)
  1. IBUPROFEN [Suspect]
     Active Substance: IBUPROFEN
     Indication: Pain
     Dosage: UNK

REACTIONS (9)
  - Death neonatal [Fatal]
  - Tricuspid valve incompetence [Unknown]
  - Patent ductus arteriosus [Unknown]
  - Pulmonary hypertension [Unknown]
  - Foetal exposure during pregnancy [Unknown]
  - Amniotic cavity infection [Unknown]
  - Pulmonary hypoplasia [Unknown]
  - Oligohydramnios [Unknown]
  - Premature rupture of membranes [Unknown]
